FAERS Safety Report 7360406-8 (Version None)
Quarter: 2011Q1

REPORT INFORMATION
  Report Type: 
  Country: None (occurrence: None)
  Receive Date: 20110318
  Receipt Date: 20100927
  Transmission Date: 20110831
  Serious: Yes (Hospitalization)
  Sender: FDA-Public Use
  Company Number: US-BAYER-201033784NA

PATIENT
  Sex: Female
  Weight: 74.376 kg

DRUGS (11)
  1. YASMIN [Suspect]
     Indication: PRODUCT USED FOR UNKNOWN INDICATION
     Route: 048
  2. IBUPROFEN [Concomitant]
     Dosage: UNK
     Dates: start: 20000101, end: 20080101
  3. YAZ [Suspect]
  4. ANTIBIOTICS [Concomitant]
     Dosage: UNK
     Dates: start: 20030101
  5. ZYRTEC [Concomitant]
     Indication: ASTHMA
     Dosage: UNK
     Dates: start: 19900101, end: 20100101
  6. YAZ [Suspect]
     Indication: PREMENSTRUAL SYNDROME
     Dosage: UNK
     Route: 048
     Dates: start: 20000101, end: 20030101
  7. ALBUTEROL SULFATE [Concomitant]
     Indication: ASTHMA
     Dosage: UNK
     Dates: start: 19900101, end: 20100101
  8. OCELLA [Suspect]
     Indication: PRODUCT USED FOR UNKNOWN INDICATION
     Route: 048
  9. ADVAIR DISKUS 100/50 [Concomitant]
     Indication: ASTHMA
     Dosage: UNK
     Dates: start: 19900101, end: 20100101
  10. SINGULAIR [Concomitant]
     Indication: ASTHMA
     Dosage: UNK
     Dates: start: 19900101, end: 20100101
  11. ALBUTEROL [Concomitant]
     Indication: ASTHMA
     Dosage: UNK
     Dates: start: 19900101, end: 20100101

REACTIONS (4)
  - INJURY [None]
  - CHOLELITHIASIS [None]
  - PAIN [None]
  - CHOLECYSTITIS CHRONIC [None]
